FAERS Safety Report 23743315 (Version 3)
Quarter: 2024Q2

REPORT INFORMATION
  Report Type: Spontaneous
  Country: JP (occurrence: JP)
  Receive Date: 20240415
  Receipt Date: 20240422
  Transmission Date: 20240716
  Serious: Yes (Hospitalization, Other)
  Sender: FDA-Public Use
  Company Number: JP-BAYER-2024A051003

PATIENT
  Age: 8 Decade
  Sex: Male

DRUGS (2)
  1. NUBEQA [Suspect]
     Active Substance: DAROLUTAMIDE
     Indication: Prostate cancer metastatic
     Dosage: 600 MG, BID
     Dates: start: 20240305, end: 20240329
  2. DOCETAXEL [Concomitant]
     Active Substance: DOCETAXEL\DOCETAXEL ANHYDROUS

REACTIONS (5)
  - Vomiting [Recovered/Resolved]
  - Pyrexia [Recovered/Resolved]
  - Abdominal pain [Recovered/Resolved]
  - Rash [Recovered/Resolved]
  - Metastases to bone [Recovering/Resolving]

NARRATIVE: CASE EVENT DATE: 20240319
